FAERS Safety Report 16871974 (Version 4)
Quarter: 2020Q1

REPORT INFORMATION
  Report Type: Report from Study
  Country: JP (occurrence: JP)
  Receive Date: 20191001
  Receipt Date: 20200319
  Transmission Date: 20200409
  Serious: Yes (Life-Threatening, Hospitalization, Other)
  Sender: FDA-Public Use
  Company Number: JP-GLAXOSMITHKLINE-JP2018JPN189402

PATIENT
  Age: 63 Year
  Sex: Female
  Weight: 61 kg

DRUGS (16)
  1. BELIMUMAB [Suspect]
     Active Substance: BELIMUMAB
     Dosage: 10 MG/KG, EVERY 4 WEEKS
     Route: 041
     Dates: start: 20190308, end: 20190813
  2. PREDONINE [Concomitant]
     Active Substance: PREDNISOLONE
     Dosage: 10 MG, 1D
     Dates: start: 20180831, end: 20190308
  3. PREDONINE [Concomitant]
     Active Substance: PREDNISOLONE
     Dosage: 9 MG, 1D
     Dates: start: 20190309, end: 20190425
  4. LIVALO [Concomitant]
     Active Substance: PITAVASTATIN CALCIUM
     Dosage: UNK
  5. PLAQUENIL [Concomitant]
     Active Substance: HYDROXYCHLOROQUINE SULFATE
     Indication: SYSTEMIC LUPUS ERYTHEMATOSUS
     Dosage: 200 MG, QD
  6. ZOLPIDEM TARTRATE TABLETS [Concomitant]
     Active Substance: ZOLPIDEM TARTRATE
     Dosage: UNK
  7. BELIMUMAB [Suspect]
     Active Substance: BELIMUMAB
     Dosage: 10 MG/KG, EVERY 4 WEEKS
     Route: 041
     Dates: start: 20181109, end: 20190208
  8. BELIMUMAB [Suspect]
     Active Substance: BELIMUMAB
     Indication: SYSTEMIC LUPUS ERYTHEMATOSUS
     Dosage: 10 MG/KG, EVERY 2 WEEKS
     Route: 041
     Dates: start: 20180831, end: 20180914
  9. PREDONINE [Concomitant]
     Active Substance: PREDNISOLONE
     Dosage: 8 MG, 1D
     Dates: start: 20190426, end: 20190621
  10. EQUA [Concomitant]
     Active Substance: VILDAGLIPTIN
     Dosage: UNK
  11. OLOPATADINE. [Concomitant]
     Active Substance: OLOPATADINE
     Indication: URTICARIA
     Dosage: UNK
  12. PREDONINE [Concomitant]
     Active Substance: PREDNISOLONE
     Dosage: 7 MG, 1D
     Dates: start: 20190622
  13. TACROLIMUS HYDRATE [Concomitant]
     Active Substance: TACROLIMUS
     Indication: LUPUS NEPHRITIS
     Dosage: 3 MG, QD
  14. TACROLIMUS HYDRATE [Concomitant]
     Active Substance: TACROLIMUS
     Indication: SYSTEMIC LUPUS ERYTHEMATOSUS
  15. METFORMIN HYDROCHLORIDE. [Concomitant]
     Active Substance: METFORMIN HYDROCHLORIDE
     Dosage: UNK
  16. PREDONINE [Concomitant]
     Active Substance: PREDNISOLONE
     Indication: SYSTEMIC LUPUS ERYTHEMATOSUS
     Dosage: 5 MG, 1D

REACTIONS (2)
  - Colon cancer [Not Recovered/Not Resolved]
  - Urticaria [Recovered/Resolved]

NARRATIVE: CASE EVENT DATE: 20180924
